FAERS Safety Report 23889625 (Version 14)
Quarter: 2025Q3

REPORT INFORMATION
  Report Type: Report from Study
  Country: US (occurrence: US)
  Receive Date: 20240523
  Receipt Date: 20250911
  Transmission Date: 20251021
  Serious: Yes (Other)
  Sender: TAKEDA
  Company Number: US-TAKEDA-2024TUS051356

PATIENT
  Age: 72 Year
  Sex: Female
  Weight: 109 kg

DRUGS (29)
  1. HUMAN IMMUNOGLOBULIN G [Suspect]
     Active Substance: HUMAN IMMUNOGLOBULIN G
     Indication: Immunodeficiency common variable
     Dosage: 45 GRAM, Q4WEEKS
     Dates: start: 20240520
  2. GAMMAGARD S/D [Suspect]
     Active Substance: HUMAN IMMUNOGLOBULIN G
     Indication: Immunodeficiency common variable
     Dosage: 45 GRAM, Q4WEEKS
  3. GAMMAGARD S/D [Suspect]
     Active Substance: HUMAN IMMUNOGLOBULIN G
  4. ONDANSETRON [Suspect]
     Active Substance: ONDANSETRON
     Indication: Nausea
  5. ACETAMINOPHEN [Concomitant]
     Active Substance: ACETAMINOPHEN
  6. EPINEPHRINE [Concomitant]
     Active Substance: EPINEPHRINE
  7. VITAMIN B [Concomitant]
     Active Substance: VITAMIN B
  8. LEVOCETIRIZINE DIHYDROCHLORIDE [Concomitant]
     Active Substance: LEVOCETIRIZINE DIHYDROCHLORIDE
  9. VITAMIN D [Concomitant]
     Active Substance: VITAMIN D NOS
  10. SODIUM CHLORIDE [Concomitant]
     Active Substance: SODIUM CHLORIDE
  11. TRESIBA [Concomitant]
     Active Substance: INSULIN DEGLUDEC
  12. ATORVASTATIN CALCIUM [Concomitant]
     Active Substance: ATORVASTATIN CALCIUM
  13. LIDOCAINE [Concomitant]
     Active Substance: LIDOCAINE
  14. Calcium plus D3 + minerals [Concomitant]
  15. SPIRONOLACTONE [Concomitant]
     Active Substance: SPIRONOLACTONE
  16. DIPHENHYDRAMINE HYDROCHLORIDE [Concomitant]
     Active Substance: DIPHENHYDRAMINE HYDROCHLORIDE
  17. ASPIRIN [Concomitant]
     Active Substance: ASPIRIN
  18. VITAMIN C [Concomitant]
     Active Substance: ASCORBIC ACID
  19. RYBELSUS [Concomitant]
     Active Substance: SEMAGLUTIDE
  20. OMEPRAZOLE [Concomitant]
     Active Substance: OMEPRAZOLE
  21. MESALAMINE [Concomitant]
     Active Substance: MESALAMINE
  22. ORENCIA [Concomitant]
     Active Substance: ABATACEPT
  23. TRESIBA [Concomitant]
     Active Substance: INSULIN DEGLUDEC
  24. VITAMIN D3 [Concomitant]
     Active Substance: CHOLECALCIFEROL
  25. MEDROL [Concomitant]
     Active Substance: METHYLPREDNISOLONE
  26. TIZANIDINE HYDROCHLORIDE [Concomitant]
     Active Substance: TIZANIDINE HYDROCHLORIDE
  27. MOUNJARO [Concomitant]
     Active Substance: TIRZEPATIDE
  28. BIOTIN [Concomitant]
     Active Substance: BIOTIN
  29. APRISO [Concomitant]
     Active Substance: MESALAMINE

REACTIONS (16)
  - Rheumatoid arthritis [Unknown]
  - Neuropathy peripheral [Unknown]
  - Infusion related reaction [Recovering/Resolving]
  - Neck pain [Recovered/Resolved]
  - Arthritis [Unknown]
  - Nasopharyngitis [Unknown]
  - Poor venous access [Unknown]
  - Pharyngitis [Unknown]
  - Muscle spasms [Unknown]
  - Migraine [Recovered/Resolved]
  - Chills [Unknown]
  - Headache [Unknown]
  - Nausea [Recovering/Resolving]
  - Sinusitis [Unknown]
  - Cough [Unknown]
  - Fatigue [Unknown]

NARRATIVE: CASE EVENT DATE: 20240913
